FAERS Safety Report 11370274 (Version 1)
Quarter: 2015Q3

REPORT INFORMATION
  Report Type: Spontaneous
  Country: CH (occurrence: CH)
  Receive Date: 20150812
  Receipt Date: 20150812
  Transmission Date: 20151125
  Serious: Yes (Death)
  Sender: FDA-Public Use
  Company Number: CH-JNJFOC-20150720501

PATIENT
  Age: 21 Year
  Sex: Male

DRUGS (6)
  1. RIVOTRIL [Concomitant]
     Active Substance: CLONAZEPAM
     Indication: BIPOLAR I DISORDER
     Route: 048
     Dates: start: 201506, end: 201506
  2. HALDOL [Suspect]
     Active Substance: HALOPERIDOL
     Indication: BIPOLAR I DISORDER
     Route: 048
     Dates: start: 20150623, end: 20150626
  3. HALDOL [Suspect]
     Active Substance: HALOPERIDOL
     Indication: BIPOLAR I DISORDER
     Route: 048
     Dates: start: 20150604, end: 20150622
  4. XEPLION [Suspect]
     Active Substance: PALIPERIDONE PALMITATE
     Indication: BIPOLAR I DISORDER
     Route: 030
     Dates: start: 201505, end: 20150626
  5. TOPAMAX [Concomitant]
     Active Substance: TOPIRAMATE
     Indication: DEPRESSION
     Route: 048
  6. IMOVANE [Concomitant]
     Active Substance: ZOPICLONE
     Indication: DEPRESSION
     Route: 048

REACTIONS (14)
  - Hypotension [Fatal]
  - Coagulopathy [Fatal]
  - Disturbance in attention [Fatal]
  - Neuroleptic malignant syndrome [Fatal]
  - Hyperthermia [Fatal]
  - Tachycardia [Fatal]
  - Rhabdomyolysis [Fatal]
  - Vasoplegia syndrome [Fatal]
  - Multi-organ failure [Fatal]
  - Disseminated intravascular coagulation [Fatal]
  - Hepatocellular injury [Fatal]
  - Coma [Fatal]
  - Acute kidney injury [Fatal]
  - Atelectasis [Unknown]

NARRATIVE: CASE EVENT DATE: 201506
